FAERS Safety Report 4648583-0 (Version None)
Quarter: 2005Q2

REPORT INFORMATION
  Report Type: 
  Country: None (occurrence: None)
  Receive Date: 20050427
  Receipt Date: 20050418
  Transmission Date: 20051028
  Serious: Yes (Other)
  Sender: FDA-Public Use
  Company Number: 2005061120

PATIENT
  Sex: 0

DRUGS (5)
  1. ISTIN (AMLODIPINE) [Suspect]
     Indication: HYPERTENSION
     Dosage: (10 MG), ORAL
     Route: 048
     Dates: end: 20041101
  2. BENDROFULUMETHIAZIDE (BENDROFLUMETHIAZIDE) [Concomitant]
  3. TRAMADOL HCL [Concomitant]
  4. ASPIRIN [Concomitant]
  5. LANSOPRAZOLE [Concomitant]

REACTIONS (1)
  - GINGIVAL HYPERTROPHY [None]
